FAERS Safety Report 22895955 (Version 3)
Quarter: 2023Q4

REPORT INFORMATION
  Report Type: Report from Study
  Country: CN (occurrence: CN)
  Receive Date: 20230901
  Receipt Date: 20231005
  Transmission Date: 20240109
  Serious: Yes (Life-Threatening, Hospitalization)
  Sender: FDA-Public Use
  Company Number: CN-PFIZER INC-202300287828

PATIENT
  Age: 54 Year
  Sex: Female
  Weight: 62.1 kg

DRUGS (6)
  1. ELRANATAMAB [Suspect]
     Active Substance: ELRANATAMAB
     Indication: Plasma cell myeloma
     Dosage: 12.0 MG, SINGLE
     Route: 058
     Dates: start: 20230710, end: 20230710
  2. ELRANATAMAB [Suspect]
     Active Substance: ELRANATAMAB
     Dosage: 36.0 MG, SINGLE
     Route: 058
     Dates: start: 20230717, end: 20230717
  3. ELRANATAMAB [Suspect]
     Active Substance: ELRANATAMAB
     Dosage: 76.0 MG, WEEKLY
     Route: 058
     Dates: start: 20230721, end: 20230721
  4. ELRANATAMAB [Suspect]
     Active Substance: ELRANATAMAB
     Dosage: 76.0 MG, WEEKLY
     Route: 058
     Dates: start: 20230727, end: 20230727
  5. ELRANATAMAB [Suspect]
     Active Substance: ELRANATAMAB
     Dosage: 76.0 MG, WEEKLY
     Route: 058
     Dates: start: 20230803, end: 20230803
  6. DARATUMUMAB [Suspect]
     Active Substance: DARATUMUMAB
     Indication: Plasma cell myeloma
     Dosage: 1800.0 MG, WEEKLY
     Route: 058
     Dates: start: 20230727, end: 20230803

REACTIONS (2)
  - Hypokalaemia [Recovered/Resolved]
  - Hypocalcaemia [Recovered/Resolved]

NARRATIVE: CASE EVENT DATE: 20230824
